FAERS Safety Report 16287501 (Version 2)
Quarter: 2020Q4

REPORT INFORMATION
  Report Type: Spontaneous
  Country: US (occurrence: US)
  Receive Date: 20190508
  Receipt Date: 20201104
  Transmission Date: 20210113
  Serious: Yes (Other)
  Sender: FDA-Public Use
  Company Number: US-ASTRAZENECA-2019SE62117

PATIENT
  Age: 25944 Day
  Sex: Female
  Weight: 74.4 kg

DRUGS (40)
  1. CLOPIDOGREL [Concomitant]
     Active Substance: CLOPIDOGREL BISULFATE
  2. COLACE [Concomitant]
     Active Substance: DOCUSATE SODIUM
  3. DICLOFENAC SODIUM. [Concomitant]
     Active Substance: DICLOFENAC SODIUM
  4. ACETAMINOPHEN. [Concomitant]
     Active Substance: ACETAMINOPHEN
  5. SINGULAIR [Concomitant]
     Active Substance: MONTELUKAST SODIUM
  6. VASCEPA [Concomitant]
     Active Substance: ICOSAPENT ETHYL
  7. AMLODIPINE [Concomitant]
     Active Substance: AMLODIPINE BESYLATE
  8. METOPROLOL. [Concomitant]
     Active Substance: METOPROLOL
  9. TRIAMCINOLONE [Concomitant]
     Active Substance: TRIAMCINOLONE
  10. VITAMIN D [Concomitant]
     Active Substance: VITAMIN D NOS
  11. VOLTAREN [Concomitant]
     Active Substance: DICLOFENAC SODIUM
  12. ZOVIRAX [Concomitant]
     Active Substance: ACYCLOVIR
  13. NEXIUM 24HR [Suspect]
     Active Substance: ESOMEPRAZOLE MAGNESIUM
     Route: 048
     Dates: start: 200102, end: 201609
  14. ASPIRIN. [Concomitant]
     Active Substance: ASPIRIN
  15. HYDROCHLOROTHIAZIDE. [Concomitant]
     Active Substance: HYDROCHLOROTHIAZIDE
  16. AMMONIUM LACTATE. [Concomitant]
     Active Substance: AMMONIUM LACTATE
  17. IPRATROPIUM [Concomitant]
     Active Substance: IPRATROPIUM
  18. AMOXICILLIN. [Concomitant]
     Active Substance: AMOXICILLIN
  19. TRAMADOL HYDROCHLORIDE. [Concomitant]
     Active Substance: TRAMADOL HYDROCHLORIDE
  20. ATENOLOL. [Concomitant]
     Active Substance: ATENOLOL
  21. PREDNISONE. [Concomitant]
     Active Substance: PREDNISONE
  22. LOSARTAN. [Concomitant]
     Active Substance: LOSARTAN
  23. LOVASTATIN. [Concomitant]
     Active Substance: LOVASTATIN
  24. AZITHROMYCIN ANHYDROUS. [Concomitant]
     Active Substance: AZITHROMYCIN ANHYDROUS
  25. RESTASIS [Concomitant]
     Active Substance: CYCLOSPORINE
  26. METHYLPREDNISOLONE. [Concomitant]
     Active Substance: METHYLPREDNISOLONE
  27. DOXYCYCLINE HYCLATE. [Concomitant]
     Active Substance: DOXYCYCLINE HYCLATE
  28. NEXIUM [Suspect]
     Active Substance: ESOMEPRAZOLE MAGNESIUM
     Route: 048
     Dates: start: 200102, end: 201609
  29. FOLIC ACID. [Concomitant]
     Active Substance: FOLIC ACID
  30. ARANESP [Concomitant]
     Active Substance: DARBEPOETIN ALFA
  31. IBUPROFEN. [Concomitant]
     Active Substance: IBUPROFEN
  32. TORSEMIDE. [Concomitant]
     Active Substance: TORSEMIDE
  33. FERROUS SULFATE. [Concomitant]
     Active Substance: FERROUS SULFATE
  34. FUROSEMIDE. [Concomitant]
     Active Substance: FUROSEMIDE
  35. NAPROXEN. [Concomitant]
     Active Substance: NAPROXEN
  36. MELOXICAM. [Concomitant]
     Active Substance: MELOXICAM
  37. SIMVASTATIN. [Concomitant]
     Active Substance: SIMVASTATIN
  38. FEXOFENADINE HYDROCHLORIDE. [Concomitant]
     Active Substance: FEXOFENADINE HYDROCHLORIDE
  39. NAPROXEN SODIUM. [Concomitant]
     Active Substance: NAPROXEN SODIUM
  40. KETOCONAZOLE. [Concomitant]
     Active Substance: KETOCONAZOLE

REACTIONS (5)
  - Renal failure [Unknown]
  - Acute kidney injury [Unknown]
  - Chronic kidney disease [Unknown]
  - Nephrogenic anaemia [Unknown]
  - End stage renal disease [Unknown]

NARRATIVE: CASE EVENT DATE: 20160222
